FAERS Safety Report 22179342 (Version 1)
Quarter: 2023Q2

REPORT INFORMATION
  Report Type: Spontaneous
  Country: GB (occurrence: GB)
  Receive Date: 20230406
  Receipt Date: 20230406
  Transmission Date: 20230721
  Serious: No
  Sender: FDA-Public Use
  Company Number: None

PATIENT
  Age: 47 Year
  Sex: Female
  Weight: 99 kg

DRUGS (13)
  1. IBUPROFEN [Suspect]
     Active Substance: IBUPROFEN
     Indication: Product used for unknown indication
     Dosage: 200 MILLIGRAM, TABLET
     Route: 065
     Dates: start: 20230220
  2. BETAHISTINE [Concomitant]
     Active Substance: BETAHISTINE
     Indication: Product used for unknown indication
     Dosage: UNK, TID (TAKE ONE TABLET UP TO THREE TIMES A DAY)
     Route: 065
     Dates: start: 20220218
  3. CARBOCYSTEINE [Concomitant]
     Active Substance: CARBOCYSTEINE
     Indication: Product used for unknown indication
     Dosage: UNK, TAKE 2 CAPSULES IN THE MORNING (MAX 2 CAPSLUES
     Route: 065
     Dates: start: 20220908
  4. POLYETHYLENE GLYCOL 3350\POTASSIUM CHLORIDE\SODIUM BICARBONATE\SODIUM [Concomitant]
     Active Substance: POLYETHYLENE GLYCOL 3350\POTASSIUM CHLORIDE\SODIUM BICARBONATE\SODIUM CHLORIDE
     Indication: Product used for unknown indication
     Dosage: UNK, QD (TAKE ONE TO THREE SACHETS DAILY IN DIVIDED DOSES)
     Route: 065
     Dates: start: 20220218
  5. DOXAZOSIN [Concomitant]
     Active Substance: DOXAZOSIN MESYLATE
     Indication: Product used for unknown indication
     Dosage: UNK, QD (TAKE TWO DAILY)
     Route: 065
     Dates: start: 20220218
  6. BECLOMETHASONE\FORMOTEROL [Concomitant]
     Active Substance: BECLOMETHASONE\FORMOTEROL
     Indication: Product used for unknown indication
     Dosage: UNK, BID (TAKE TWO PUFFS TWICE DAILY)
     Route: 065
     Dates: start: 20220218
  7. BUTYLSCOPOLAMINE BROMIDE [Concomitant]
     Active Substance: BUTYLSCOPOLAMINE BROMIDE
     Indication: Product used for unknown indication
     Dosage: UNK, TID (TAKE ONE OR TWO TABLETS THREE TIMES A DAY WHEN)
     Route: 065
     Dates: start: 20230127, end: 20230224
  8. LANSOPRAZOLE [Concomitant]
     Active Substance: LANSOPRAZOLE
     Indication: Product used for unknown indication
     Dosage: UNK, OD (TAKE TWO ONCE DAILY)
     Route: 065
     Dates: start: 20220218
  9. MONTELUKAST [Concomitant]
     Active Substance: MONTELUKAST SODIUM
     Indication: Product used for unknown indication
     Dosage: UNK, HS (TAKE ONE AT NIGHT)
     Route: 065
     Dates: start: 20220218
  10. Oxypro prolonged release [Concomitant]
     Indication: Product used for unknown indication
     Dosage: UNK, BID (TAKE ONE EVERY 12 HRS)
     Route: 065
     Dates: start: 20220718
  11. PROCHLORPERAZINE [Concomitant]
     Active Substance: PROCHLORPERAZINE
     Indication: Product used for unknown indication
     Dosage: UNK, TID (TAKE ONE OR TWO UP TO THREE TIMES A DAY)
     Route: 065
     Dates: start: 20220218
  12. ALBUTEROL [Concomitant]
     Active Substance: ALBUTEROL
     Indication: Product used for unknown indication
     Dosage: UNK, INHALE 2 DOSES AS NEEDED
     Route: 065
     Dates: start: 20220808
  13. SPIRIVA [Concomitant]
     Active Substance: TIOTROPIUM BROMIDE MONOHYDRATE
     Indication: Product used for unknown indication
     Dosage: UNK, OD (TWO PUFFS ONCE DAILY)
     Route: 065
     Dates: start: 20220719

REACTIONS (1)
  - Pruritus [Recovered/Resolved]
